FAERS Safety Report 15635637 (Version 1)
Quarter: 2018Q4

REPORT INFORMATION
  Report Type: Spontaneous
  Country: GB (occurrence: GB)
  Receive Date: 20181120
  Receipt Date: 20181120
  Transmission Date: 20190205
  Serious: Yes (Other)
  Sender: FDA-Public Use
  Company Number: GB-ROCHE-2215385

PATIENT
  Sex: Female

DRUGS (7)
  1. GEMCITABINE [Concomitant]
     Active Substance: GEMCITABINE\GEMCITABINE HYDROCHLORIDE
  2. CAPECITABINE. [Suspect]
     Active Substance: CAPECITABINE
     Indication: BREAST CANCER
     Route: 065
  3. CYCLOPHOSPHAMIDE. [Concomitant]
     Active Substance: CYCLOPHOSPHAMIDE
  4. 5-FU [Concomitant]
     Active Substance: FLUOROURACIL
  5. CARBOPLATIN. [Concomitant]
     Active Substance: CARBOPLATIN
  6. EPIRUBICIN [Concomitant]
     Active Substance: EPIRUBICIN
  7. TAXOTERE [Concomitant]
     Active Substance: DOCETAXEL

REACTIONS (2)
  - Breast cancer metastatic [Unknown]
  - Drug ineffective [Unknown]
